FAERS Safety Report 14256639 (Version 2)
Quarter: 2018Q1

REPORT INFORMATION
  Report Type: Spontaneous
  Country: US (occurrence: US)
  Receive Date: 20171206
  Receipt Date: 20180205
  Transmission Date: 20180508
  Serious: Yes (Other)
  Sender: FDA-Public Use
  Company Number: US-PFIZER INC-2017520906

PATIENT
  Age: 68 Year
  Sex: Female

DRUGS (4)
  1. IBRANCE [Suspect]
     Active Substance: PALBOCICLIB
     Dosage: 100 MG, DAILY
     Route: 048
     Dates: start: 20170811
  2. BENEFIBER [Concomitant]
     Active Substance: STARCH, WHEAT
     Dosage: UNK (3G/3.5G POWDER IN PACKET (EA) TAKE 1 PACKET AS DIRECTED)
     Route: 048
  3. ZOMETA [Concomitant]
     Active Substance: ZOLEDRONIC ACID
     Dosage: 4 MG, UNK (AS DIRECTED)
     Route: 042
     Dates: start: 20170707
  4. IBRANCE [Suspect]
     Active Substance: PALBOCICLIB
     Dosage: 75 MG, DAILY
     Route: 048
     Dates: start: 20170707

REACTIONS (1)
  - Bone marrow failure [Unknown]
